FAERS Safety Report 6124011-3 (Version None)
Quarter: 2009Q1

REPORT INFORMATION
  Report Type: 
  Country: None (occurrence: None)
  Receive Date: 20090318
  Receipt Date: 20090318
  Transmission Date: 20090719
  Serious: Yes (Hospitalization)
  Sender: FDA-Public Use
  Company Number: None

PATIENT
  Age: 60 Year
  Sex: Male
  Weight: 119 kg

DRUGS (2)
  1. VELCADE [Suspect]
     Dosage: 1.3MG/M2 (3MG) D1,4,8,11 Q21DAY IV
     Route: 042
     Dates: start: 20090309
  2. ALCAR (DEXAMETHASONE-COMMERCIAL) [Suspect]
     Dosage: 500MG 3 TABS BID PO
     Route: 048
     Dates: start: 20090309

REACTIONS (3)
  - HAEMOGLOBIN DECREASED [None]
  - SEPSIS [None]
  - URINARY TRACT INFECTION [None]
